FAERS Safety Report 6784289-X (Version None)
Quarter: 2010Q2

REPORT INFORMATION
  Report Type: 
  Country: None (occurrence: None)
  Receive Date: 20100622
  Receipt Date: 20100616
  Transmission Date: 20101027
  Serious: Yes (Hospitalization, Other)
  Sender: FDA-Public Use
  Company Number: CH-BAYER-201028959GPV

PATIENT
  Age: 31 Year
  Sex: Female

DRUGS (1)
  1. ASPIRIN [Suspect]
     Indication: VIRAL INFECTION
     Route: 048
     Dates: start: 20100324, end: 20100324

REACTIONS (5)
  - DYSPNOEA [None]
  - ERYTHEMA [None]
  - FACE OEDEMA [None]
  - HYPERSENSITIVITY [None]
  - PRURITUS [None]
